FAERS Safety Report 24230526 (Version 1)
Quarter: 2024Q3

REPORT INFORMATION
  Report Type: Spontaneous
  Country: CN (occurrence: CN)
  Receive Date: 20240821
  Receipt Date: 20240821
  Transmission Date: 20241017
  Serious: Yes (Hospitalization, Other)
  Sender: NOVO NORDISK
  Company Number: None

PATIENT
  Age: 62 Year
  Sex: Male
  Weight: 53.5 kg

DRUGS (2)
  1. INSULIN ASPART [Suspect]
     Active Substance: INSULIN ASPART
     Dosage: 30 IU, QD (20 U IN THE MORNING AND 10 U IN THE EVENING; BID)
     Route: 058
     Dates: start: 20240802
  2. INSULIN ASPART [Suspect]
     Active Substance: INSULIN ASPART
     Indication: Type 2 diabetes mellitus
     Dosage: 42 IU, QD (24 U IN THE MORNING AND 18 U IN THE EVENING; BID)
     Route: 058
     Dates: start: 20240606, end: 20240801

REACTIONS (3)
  - Loss of consciousness [Recovering/Resolving]
  - Mental disorder [Recovering/Resolving]
  - Hypoglycaemia [Recovering/Resolving]

NARRATIVE: CASE EVENT DATE: 20240701
